FAERS Safety Report 19681362 (Version 1)
Quarter: 2021Q3

REPORT INFORMATION
  Report Type: Spontaneous
  Country: US (occurrence: US)
  Receive Date: 20210810
  Receipt Date: 20210810
  Transmission Date: 20211014
  Serious: No
  Sender: FDA-Public Use
  Company Number: US-IGSA-BIG0013927

PATIENT
  Age: 71 Year
  Sex: Female

DRUGS (17)
  1. GAMUNEX?C [Suspect]
     Active Substance: HUMAN IMMUNOGLOBULIN G
     Indication: HYPOGAMMAGLOBULINAEMIA
     Dosage: 10 GRAM, Q.WK.
     Route: 058
     Dates: start: 20210324
  2. AMOXICILLIN. [Concomitant]
     Active Substance: AMOXICILLIN
  3. ARIMIDEX [Concomitant]
     Active Substance: ANASTROZOLE
  4. AMLODIPINE BESYLATE. [Concomitant]
     Active Substance: AMLODIPINE BESYLATE
  5. LACTOBACILLUS [Concomitant]
     Active Substance: LACTOBACILLUS ACIDOPHILUS
  6. LEVOTHYROXINE SODIUM. [Concomitant]
     Active Substance: LEVOTHYROXINE SODIUM
  7. TIMOLOL MALEATE. [Concomitant]
     Active Substance: TIMOLOL MALEATE
  8. LOVASTATIN. [Concomitant]
     Active Substance: LOVASTATIN
  9. METOPROLOL SUCCINATE. [Concomitant]
     Active Substance: METOPROLOL SUCCINATE
  10. OMEPRAZOLE. [Concomitant]
     Active Substance: OMEPRAZOLE
  11. BREO ELLIPTA [Concomitant]
     Active Substance: FLUTICASONE FUROATE\VILANTEROL TRIFENATATE
  12. MULTIPLE VITAMIN [Concomitant]
     Active Substance: VITAMINS
  13. FLONASE ALLERGY RELIEF [Concomitant]
     Active Substance: FLUTICASONE PROPIONATE
  14. CALCIUM +D [CALCIUM CARBONATE;COLECALCIFEROL] [Concomitant]
  15. CRANBERRY CONCENTRATE [VACCINIUM MACROCARPON] [Concomitant]
  16. LATANOPROST. [Concomitant]
     Active Substance: LATANOPROST
  17. ZYRTEC [Concomitant]
     Active Substance: CETIRIZINE HYDROCHLORIDE

REACTIONS (3)
  - Infusion site bruising [Recovered/Resolved]
  - Headache [Recovered/Resolved]
  - Infusion site erythema [Recovered/Resolved]

NARRATIVE: CASE EVENT DATE: 20210324
